FAERS Safety Report 5193546-2 (Version None)
Quarter: 2006Q4

REPORT INFORMATION
  Report Type: 
  Country: None (occurrence: None)
  Receive Date: 20061228
  Receipt Date: 20060720
  Transmission Date: 20070319
  Serious: No
  Sender: FDA-Public Use
  Company Number: US-GLAXOSMITHKLINE-A0612987A

PATIENT
  Age: 73 Year
  Sex: Female

DRUGS (9)
  1. FLONASE [Suspect]
     Indication: DRUG USE FOR UNKNOWN INDICATION
     Dosage: 1SPR TWICE PER DAY
     Route: 045
  2. PROVIGIL [Concomitant]
  3. PREDNISONE TAB [Concomitant]
  4. BENICAR [Concomitant]
  5. SYNTHROID [Concomitant]
  6. METHOTREXATE [Concomitant]
  7. FOLIC ACID [Concomitant]
  8. WELLBUTRIN [Concomitant]
  9. AMBIEN [Concomitant]

REACTIONS (1)
  - DRUG INEFFECTIVE [None]
